FAERS Safety Report 15257971 (Version 2)
Quarter: 2019Q1

REPORT INFORMATION
  Report Type: Report from Study
  Country: None (occurrence: BR)
  Receive Date: 20180808
  Receipt Date: 20190114
  Transmission Date: 20190417
  Serious: Yes (Hospitalization, Other)
  Sender: FDA-Public Use
  Company Number: BR-ABBVIE-18K-020-2445280-00

PATIENT
  Age: 84 Year
  Sex: Female
  Weight: 80 kg

DRUGS (4)
  1. ATENOLOL. [Concomitant]
     Active Substance: ATENOLOL
     Indication: HYPERTENSION
  2. DIOVAN [Concomitant]
     Active Substance: VALSARTAN
     Indication: HYPERTENSION
  3. ROSUCOR [Concomitant]
     Active Substance: ROSUVASTATIN CALCIUM
     Indication: BLOOD CHOLESTEROL INCREASED
  4. HUMIRA [Suspect]
     Active Substance: ADALIMUMAB
     Indication: RHEUMATOID ARTHRITIS
     Route: 058
     Dates: start: 20180502, end: 20180725

REACTIONS (4)
  - Infection [Recovered/Resolved]
  - Nosocomial infection [Recovered/Resolved]
  - Malaise [Recovered/Resolved]
  - Nerve root compression [Recovered/Resolved]

NARRATIVE: CASE EVENT DATE: 20180716
